FAERS Safety Report 16070144 (Version 1)
Quarter: 2019Q1

REPORT INFORMATION
  Report Type: Spontaneous
  Country: FR (occurrence: FR)
  Receive Date: 20190314
  Receipt Date: 20190314
  Transmission Date: 20190418
  Serious: Yes (Other)
  Sender: FDA-Public Use
  Company Number: FR-ACCORD-112328

PATIENT

DRUGS (6)
  1. BLEOMYCIN [Concomitant]
     Active Substance: BLEOMYCIN SULFATE
     Indication: NON-HODGKIN^S LYMPHOMA STAGE II
     Dosage: AT DAY 1 AND 15 OF A 28-DAY CYCLE
     Route: 064
  2. DOXORUBICIN [Interacting]
     Active Substance: DOXORUBICIN
     Indication: NON-HODGKIN^S LYMPHOMA STAGE II
     Dosage: AT DAY 1 AND 15 OF A 28-DAY CYCLE
     Route: 064
  3. DEXAMETHASONE. [Concomitant]
     Active Substance: DEXAMETHASONE
     Indication: VOMITING
     Route: 064
  4. ONDANSETRON [Suspect]
     Active Substance: ONDANSETRON
     Indication: PROPHYLAXIS
     Route: 064
  5. DACARBAZINE. [Concomitant]
     Active Substance: DACARBAZINE
     Indication: NON-HODGKIN^S LYMPHOMA STAGE II
     Dosage: AT DAY 1 AND 15 OF A 28-DAY CYCLE
     Route: 064
  6. VINBLASTINE [Concomitant]
     Active Substance: VINBLASTINE
     Indication: NON-HODGKIN^S LYMPHOMA STAGE II
     Dosage: AT DAY 1 AND 15 OF A 28-DAY CYCLE
     Route: 064

REACTIONS (3)
  - Drug interaction [Unknown]
  - Foetal exposure during pregnancy [Unknown]
  - Cardiac dysfunction [Recovered/Resolved]
